FAERS Safety Report 10179358 (Version 2)
Quarter: 2014Q2

REPORT INFORMATION
  Report Type: Report from Study
  Country: RU (occurrence: RU)
  Receive Date: 20140519
  Receipt Date: 20140519
  Transmission Date: 20141212
  Serious: Yes (Death)
  Sender: FDA-Public Use
  Company Number: RU-ASTRAZENECA-2014SE31477

PATIENT
  Age: 24307 Day
  Sex: Female

DRUGS (6)
  1. AZD6140 [Suspect]
     Indication: CORONARY ARTERY DISEASE
     Route: 048
     Dates: start: 20110912, end: 20110914
  2. MALTOFER [Concomitant]
     Indication: ANAEMIA
     Route: 048
     Dates: start: 20120307
  3. VEROSHPIRON [Concomitant]
     Indication: CARDIAC FAILURE
     Route: 048
  4. EGILOK [Concomitant]
     Indication: MYOCARDIAL ISCHAEMIA
     Route: 048
     Dates: start: 20120206
  5. ENALAPRIL [Concomitant]
     Indication: HYPERTENSION
     Route: 048
     Dates: start: 20120206
  6. ASA [Concomitant]
     Route: 048

REACTIONS (1)
  - Death [Fatal]
